FAERS Safety Report 12179423 (Version 1)
Quarter: 2016Q1

REPORT INFORMATION
  Report Type: Report from Study
  Country: US (occurrence: US)
  Receive Date: 20160315
  Receipt Date: 20160315
  Transmission Date: 20160526
  Serious: No
  Sender: FDA-Public Use
  Company Number: PHHY2016US012835

PATIENT
  Age: 53 Year
  Sex: Male

DRUGS (2)
  1. GILENYA [Suspect]
     Active Substance: FINGOLIMOD HYDROCHLORIDE
     Indication: MULTIPLE SCLEROSIS
     Route: 048
  2. NICOTINE. [Concomitant]
     Active Substance: NICOTINE
     Indication: SMOKING CESSATION THERAPY
     Route: 065
     Dates: start: 20150915

REACTIONS (4)
  - Blood urine present [Recovered/Resolved]
  - Mouth ulceration [Not Recovered/Not Resolved]
  - Thermal burn [Not Recovered/Not Resolved]
  - Diplopia [Recovered/Resolved]

NARRATIVE: CASE EVENT DATE: 20150914
